FAERS Safety Report 11696823 (Version 3)
Quarter: 2015Q4

REPORT INFORMATION
  Report Type: Report from Study
  Country: US (occurrence: US)
  Receive Date: 20151104
  Receipt Date: 20151222
  Transmission Date: 20160304
  Serious: Yes (Hospitalization, Other)
  Sender: FDA-Public Use
  Company Number: US-GILEAD-2015-0180316

PATIENT
  Age: 86 Year
  Sex: Female

DRUGS (2)
  1. ADCIRCA [Concomitant]
     Active Substance: TADALAFIL
  2. AMBRISENTAN [Suspect]
     Active Substance: AMBRISENTAN
     Indication: PULMONARY HYPERTENSION
     Dosage: 10 MG, QD
     Route: 065
     Dates: start: 20140305, end: 2014

REACTIONS (6)
  - Peripheral swelling [Recovered/Resolved]
  - Cardiac failure congestive [Unknown]
  - Weight increased [Unknown]
  - Fatigue [Unknown]
  - Mitral valve disease [Unknown]
  - Cough [Unknown]

NARRATIVE: CASE EVENT DATE: 20151026
